FAERS Safety Report 11545316 (Version 1)
Quarter: 2015Q3

REPORT INFORMATION
  Report Type: Spontaneous
  Country: SE (occurrence: SE)
  Receive Date: 20150924
  Receipt Date: 20150924
  Transmission Date: 20151125
  Serious: Yes (Other)
  Sender: FDA-Public Use
  Company Number: SE-TEVA-594938ACC

PATIENT
  Age: 23 Year
  Sex: Male

DRUGS (4)
  1. SERTRALINE [Suspect]
     Active Substance: SERTRALINE HYDROCHLORIDE
     Dates: start: 20150830, end: 20150830
  2. ATARAX [Suspect]
     Active Substance: HYDROXYZINE\HYDROXYZINE HYDROCHLORIDE
     Dates: start: 20150830, end: 20150830
  3. IBUMETIN [Suspect]
     Active Substance: IBUPROFEN
     Dates: start: 20150830, end: 20150830
  4. OXASCAND [Suspect]
     Active Substance: OXAZEPAM
     Dates: start: 20150830, end: 20150830

REACTIONS (2)
  - Toxicity to various agents [Unknown]
  - Intentional self-injury [Unknown]

NARRATIVE: CASE EVENT DATE: 20150830
